FAERS Safety Report 5489729-4 (Version None)
Quarter: 2007Q4

REPORT INFORMATION
  Report Type: 
  Country: None (occurrence: None)
  Receive Date: 20071018
  Receipt Date: 20071012
  Transmission Date: 20080405
  Serious: Yes (Other)
  Sender: FDA-Public Use
  Company Number: CA-ASTRAZENECA-2007UW11274

PATIENT
  Age: 45 Year
  Sex: Female
  Weight: 90 kg

DRUGS (5)
  1. SEROQUEL [Suspect]
     Indication: MAJOR DEPRESSION
     Dosage: 200 TO 300 MG
     Route: 048
     Dates: start: 20060201
  2. SEROQUEL [Suspect]
     Dosage: 400 TO 500 MG
     Route: 048
     Dates: start: 20060801
  3. ZYPREXA [Suspect]
     Indication: MAJOR DEPRESSION
     Route: 048
     Dates: start: 20060701, end: 20070511
  4. CLONAZEPAM [Concomitant]
     Dosage: 0.5 MG TID + 2 MG HS
     Route: 048
  5. CIPRALEX [Concomitant]
     Indication: DEPRESSION
     Dosage: 10 MG INCREASED TO 20 MG QD
     Route: 048
     Dates: start: 20070101

REACTIONS (7)
  - ALANINE AMINOTRANSFERASE INCREASED [None]
  - ASPARTATE AMINOTRANSFERASE INCREASED [None]
  - BLOOD GLUCOSE INCREASED [None]
  - GAMMA-GLUTAMYLTRANSFERASE INCREASED [None]
  - HEPATIC FUNCTION ABNORMAL [None]
  - LIPIDS INCREASED [None]
  - WEIGHT INCREASED [None]
